FAERS Safety Report 15841407 (Version 3)
Quarter: 2019Q1

REPORT INFORMATION
  Report Type: Report from Study
  Country: CA (occurrence: CA)
  Receive Date: 20190118
  Receipt Date: 20190307
  Transmission Date: 20190417
  Serious: Yes (Life-Threatening, Hospitalization, Other)
  Sender: FDA-Public Use
  Company Number: CA-BRISTOL-MYERS SQUIBB COMPANY-BMS-2018-105836

PATIENT
  Age: 65 Year
  Sex: Female

DRUGS (6)
  1. RELAXA                             /00100201/ [Concomitant]
     Indication: PRODUCT USED FOR UNKNOWN INDICATION
     Dosage: UNK
     Route: 065
  2. PANTOLOC                           /01263201/ [Concomitant]
     Active Substance: PANTOPRAZOLE SODIUM
     Indication: PRODUCT USED FOR UNKNOWN INDICATION
     Dosage: UNK
     Route: 065
  3. NIVOLUMAB [Suspect]
     Active Substance: NIVOLUMAB
     Indication: PRODUCT USED FOR UNKNOWN INDICATION
     Dosage: 480 MG, Q4WK
     Route: 042
  4. YERVOY [Suspect]
     Active Substance: IPILIMUMAB
     Indication: RENAL CELL CARCINOMA
     Dosage: 1 MG/ML, Q3WK
     Route: 042
     Dates: start: 20181106
  5. HYDROXYZINE [Suspect]
     Active Substance: HYDROXYZINE HYDROCHLORIDE
     Indication: PRURITUS GENERALISED
     Dosage: UNK
     Route: 065
  6. NIVOLUMAB [Suspect]
     Active Substance: NIVOLUMAB
     Indication: RENAL CELL CARCINOMA
     Dosage: 3 MG/KG, Q3WK
     Route: 042
     Dates: start: 20181106

REACTIONS (45)
  - Diabetic ketoacidosis [Unknown]
  - Headache [Recovered/Resolved]
  - Infusion related reaction [Recovered/Resolved]
  - Fall [Unknown]
  - Euphoric mood [Recovered/Resolved]
  - Haemoglobin decreased [Unknown]
  - Red cell distribution width increased [Unknown]
  - Thyroid disorder [Recovered/Resolved with Sequelae]
  - Syncope [Recovered/Resolved]
  - Cough [Recovered/Resolved]
  - Oral pain [Recovering/Resolving]
  - Tremor [Unknown]
  - Insomnia [Unknown]
  - Glomerular filtration rate decreased [Unknown]
  - Diarrhoea [Recovered/Resolved]
  - Haematocrit decreased [Unknown]
  - Weight decreased [Not Recovered/Not Resolved]
  - Pruritus generalised [Recovered/Resolved]
  - Fatigue [Recovering/Resolving]
  - Arthralgia [Not Recovered/Not Resolved]
  - Chills [Recovered/Resolved]
  - Pain [Recovering/Resolving]
  - Vomiting [Recovered/Resolved]
  - Constipation [Not Recovered/Not Resolved]
  - Type 1 diabetes mellitus [Recovered/Resolved with Sequelae]
  - Pruritus [Not Recovered/Not Resolved]
  - Heart rate increased [Unknown]
  - Anxiety [Recovering/Resolving]
  - Nausea [Recovering/Resolving]
  - Blood alkaline phosphatase increased [Unknown]
  - Mean cell haemoglobin decreased [Unknown]
  - Mean cell haemoglobin concentration decreased [Unknown]
  - Decreased appetite [Not Recovered/Not Resolved]
  - Hyperthyroidism [Not Recovered/Not Resolved]
  - Blood lactate dehydrogenase increased [Unknown]
  - Hypothyroidism [Unknown]
  - Disturbance in attention [Unknown]
  - Oropharyngeal pain [Recovering/Resolving]
  - Erythema [Recovered/Resolved]
  - Dyspnoea [Not Recovered/Not Resolved]
  - Blood creatinine increased [Unknown]
  - Pancreatitis [Unknown]
  - Somnolence [Unknown]
  - Gamma-glutamyltransferase increased [Unknown]
  - Mean cell volume decreased [Unknown]

NARRATIVE: CASE EVENT DATE: 20181106
